FAERS Safety Report 7939470-0 (Version None)
Quarter: 2011Q4

REPORT INFORMATION
  Report Type: 
  Country: None (occurrence: None)
  Receive Date: 20111125
  Receipt Date: 20111114
  Transmission Date: 20120403
  Serious: Yes (Death)
  Sender: FDA-Public Use
  Company Number: IN-ROCHE-1013176

PATIENT
  Age: 50 Year
  Sex: Male

DRUGS (1)
  1. MYCOPHENOLATE MOFETIL (CELLCEPT) [Suspect]
     Indication: PRODUCT USED FOR UNKNOWN INDICATION
     Route: 048

REACTIONS (4)
  - CARDIO-RESPIRATORY ARREST [None]
  - MULTI-ORGAN FAILURE [None]
  - KIDNEY TRANSPLANT REJECTION [None]
  - LOWER RESPIRATORY TRACT INFECTION [None]
